FAERS Safety Report 11964505 (Version 1)
Quarter: 2016Q1

REPORT INFORMATION
  Report Type: Spontaneous
  Country: US (occurrence: None)
  Receive Date: 20160121
  Receipt Date: 20160121
  Transmission Date: 20160526
  Serious: No
  Sender: FDA-Public Use
  Company Number: None

PATIENT
  Age: 44 Year
  Sex: Male
  Weight: 79.38 kg

DRUGS (2)
  1. MULTI VITAMIN [Concomitant]
     Active Substance: VITAMINS
  2. ZOLPIDEM [Suspect]
     Active Substance: ZOLPIDEM\ZOLPIDEM TARTRATE
     Indication: SLEEP DISORDER
     Dosage: 1 AS NEEDED
     Route: 048
     Dates: start: 20160111, end: 20160114

REACTIONS (4)
  - Product substitution issue [None]
  - Mental impairment [None]
  - Abdominal discomfort [None]
  - Drug ineffective [None]

NARRATIVE: CASE EVENT DATE: 20160112
